FAERS Safety Report 6300729-4 (Version None)
Quarter: 2009Q3

REPORT INFORMATION
  Report Type: 
  Country: None (occurrence: None)
  Receive Date: 20090807
  Receipt Date: 20090730
  Transmission Date: 20100115
  Serious: Yes (Hospitalization)
  Sender: FDA-Public Use
  Company Number: US-BIOGENIDEC-2006BI007303

PATIENT
  Age: 59 Year
  Sex: Female

DRUGS (2)
  1. AVONEX [Suspect]
     Indication: MULTIPLE SCLEROSIS
     Route: 030
     Dates: end: 20060329
  2. AVONEX [Suspect]
     Route: 030
     Dates: start: 20070222

REACTIONS (4)
  - CARDIAC ARREST [None]
  - CARDIAC FUNCTION DISTURBANCE POSTOPERATIVE [None]
  - DEEP VEIN THROMBOSIS [None]
  - RHEUMATIC HEART DISEASE [None]
